FAERS Safety Report 6253603-6 (Version None)
Quarter: 2009Q2

REPORT INFORMATION
  Report Type: 
  Country: None (occurrence: None)
  Receive Date: 20090630
  Receipt Date: 20090612
  Transmission Date: 20091009
  Serious: Yes (Death, Hospitalization)
  Sender: FDA-Public Use
  Company Number: 2009PL000242

PATIENT
  Sex: Female

DRUGS (1)
  1. LOTRONEX [Suspect]
     Dates: end: 20090401

REACTIONS (4)
  - DISEASE COMPLICATION [None]
  - HAEMATEMESIS [None]
  - HEPATIC CIRRHOSIS [None]
  - LIVER INJURY [None]
